FAERS Safety Report 26045825 (Version 1)
Quarter: 2025Q4

REPORT INFORMATION
  Report Type: Spontaneous
  Country: EU (occurrence: EU)
  Receive Date: 20251114
  Receipt Date: 20251114
  Transmission Date: 20260119
  Serious: Yes (Hospitalization)
  Sender: ROCHE
  Company Number: None

PATIENT
  Age: 53 Year
  Sex: Male

DRUGS (11)
  1. VALGANCICLOVIR [Suspect]
     Active Substance: VALGANCICLOVIR
     Indication: Product used for unknown indication
     Route: 065
     Dates: end: 20151013
  2. MABTHERA [Suspect]
     Active Substance: RITUXIMAB
     Indication: Kidney transplant rejection
     Dosage: DAILY DOSE: 200 MG MILLIGRAM(S) EVERY DAY
     Route: 042
     Dates: start: 20150617, end: 20150617
  3. MYFORTIC [Suspect]
     Active Substance: MYCOPHENOLATE SODIUM
     Indication: Renal transplant
     Dosage: 360 MG, QD
     Route: 048
     Dates: start: 20151006
  4. MYFORTIC [Suspect]
     Active Substance: MYCOPHENOLATE SODIUM
     Dosage: DAILY DOSE: 1080 MG MILLIGRAM(S) EVERY DAY
     Route: 048
     Dates: start: 20150511
  5. MYFORTIC [Suspect]
     Active Substance: MYCOPHENOLATE SODIUM
     Dosage: MOST RECENT DOSE OF STUDY MEDICATIONS
     Route: 048
     Dates: start: 20151022
  6. PREDNISONE [Concomitant]
     Active Substance: PREDNISONE
     Indication: Renal transplant
     Dosage: 250 MG INTRAVENOUS ONCE DAILY FOR 3 DAYS
     Route: 042
  7. PREDNISONE [Concomitant]
     Active Substance: PREDNISONE
     Route: 048
     Dates: start: 20150510
  8. PREDNISONE [Concomitant]
     Active Substance: PREDNISONE
     Dosage: MOST RECENT DOSE OF STUDY MEDICATIONS
     Route: 042
     Dates: start: 20151022
  9. TACROLIMUS [Concomitant]
     Active Substance: TACROLIMUS
     Indication: Renal transplant
     Dosage: DAILY DOSE: 6 MG MILLIGRAM(S) EVERY DAY
     Route: 048
     Dates: start: 20150511
  10. TACROLIMUS [Concomitant]
     Active Substance: TACROLIMUS
     Dosage: 2MG, BID
     Route: 048
     Dates: start: 20150510
  11. TACROLIMUS [Concomitant]
     Active Substance: TACROLIMUS
     Dosage: MOST RECENT DOSE OF STUDY MEDICATIONS
     Route: 048
     Dates: start: 20151022

REACTIONS (4)
  - Blood creatinine increased [Recovered/Resolved]
  - Urinary retention [Recovered/Resolved]
  - Kidney transplant rejection [Recovered/Resolved with Sequelae]
  - Leukopenia [Recovered/Resolved]

NARRATIVE: CASE EVENT DATE: 20150707
